FAERS Safety Report 9204744 (Version 1)
Quarter: 2013Q1

REPORT INFORMATION
  Report Type: Spontaneous
  Country: US (occurrence: None)
  Receive Date: 20130329
  Receipt Date: 20130329
  Transmission Date: 20140127
  Serious: Yes (Hospitalization)
  Sender: FDA-Public Use
  Company Number: UTC-030593

PATIENT
  Age: 75 Year
  Sex: Female
  Weight: 103.1 kg

DRUGS (2)
  1. TYVASO (6 MICROGRAM, AEROSOL FOR INHALATION) (TREPROSTINIL SODIUM) [Suspect]
     Indication: PULMONARY ARTERIAL HYPERTENSION
     Dosage: 18 TO 54 MICROGRAMS (4 IN 1D), INHALATION
     Dates: start: 20130205
  2. ADCIRCA (TADALAFIL) [Concomitant]

REACTIONS (3)
  - Fluid overload [None]
  - Chest pain [None]
  - Dyspnoea [None]
